FAERS Safety Report 9366984 (Version 4)
Quarter: 2014Q1

REPORT INFORMATION
  Report Type: Spontaneous
  Country: FR (occurrence: FR)
  Receive Date: 20130625
  Receipt Date: 20140319
  Transmission Date: 20141002
  Serious: Yes (Death, Hospitalization)
  Sender: FDA-Public Use
  Company Number: FR-VERTEX PHARMACEUTICALS INC-2013-007430

PATIENT
  Age: 63 Year
  Sex: Male

DRUGS (9)
  1. INCIVO [Suspect]
     Indication: HEPATITIS C
     Dosage: 1125 MG, BID
     Route: 048
     Dates: start: 20130401, end: 20130602
  2. PEGASYS [Concomitant]
     Indication: HEPATITIS C
     Dosage: UNK
     Route: 065
  3. COPEGUS [Concomitant]
     Indication: HEPATITIS C
     Dosage: UNK
     Route: 065
  4. KIVEXA [Concomitant]
     Dosage: UNK
     Route: 065
  5. NORVIR [Concomitant]
     Dosage: UNK
     Route: 065
  6. REYATAZ [Concomitant]
     Dosage: UNK
     Route: 065
  7. IMOVANE [Concomitant]
     Dosage: UNK
     Route: 065
  8. AERIUS [Concomitant]
     Dosage: UNK
     Route: 065
  9. OMACOR [Concomitant]
     Dosage: UNK
     Route: 065

REACTIONS (7)
  - Multi-organ failure [Fatal]
  - Respiratory failure [Unknown]
  - Gastrointestinal disorder [Recovering/Resolving]
  - Pancreatitis acute [Unknown]
  - Malaise [Recovering/Resolving]
  - Acne [Recovering/Resolving]
  - Off label use [Unknown]
